FAERS Safety Report 5173728-6 (Version None)
Quarter: 2006Q4

REPORT INFORMATION
  Report Type: 
  Country: None (occurrence: None)
  Receive Date: 20061214
  Receipt Date: 20061201
  Transmission Date: 20070319
  Serious: Yes (Other)
  Sender: FDA-Public Use
  Company Number: US-ELI_LILLY_AND_COMPANY-US200612000227

PATIENT
  Age: 42 Year
  Sex: Female

DRUGS (4)
  1. CYMBALTA [Suspect]
     Indication: INSOMNIA
     Dosage: 30 MG, DAILY (1/D)
     Dates: start: 20061001, end: 20061101
  2. AVALOX                                  /UNK/ [Concomitant]
  3. ASPIRIN [Concomitant]
     Dosage: UNK, AS NEEDED
  4. NASONEX [Concomitant]
     Dosage: UNK, DAILY (1/D)

REACTIONS (9)
  - ABDOMINAL PAIN [None]
  - AGGRESSION [None]
  - AGITATION [None]
  - BREAST DISCOMFORT [None]
  - BREAST PAIN [None]
  - CHROMATURIA [None]
  - DYSURIA [None]
  - GASTROINTESTINAL PAIN [None]
  - NERVOUSNESS [None]
